FAERS Safety Report 7721487-2 (Version None)
Quarter: 2011Q3

REPORT INFORMATION
  Report Type: 
  Country: None (occurrence: None)
  Receive Date: 20110831
  Receipt Date: 20110823
  Transmission Date: 20111222
  Serious: Yes (Hospitalization, Other)
  Sender: FDA-Public Use
  Company Number: US-BAYER-2011-022253

PATIENT
  Age: 22 Year
  Sex: Female
  Weight: 74.83 kg

DRUGS (3)
  1. YAZ [Suspect]
     Indication: CONTRACEPTION
     Dosage: UNK
     Dates: start: 20061201, end: 20071201
  2. PANTOPRAZOLE [Concomitant]
     Dosage: UNK
     Dates: start: 20080101
  3. DROSPIRENONE AND ETHINYL ESTRADIOL [Suspect]
     Indication: CONTRACEPTION
     Dosage: UNK
     Dates: start: 20080701, end: 20090701

REACTIONS (12)
  - FLATULENCE [None]
  - ABDOMINAL DISTENSION [None]
  - DIARRHOEA [None]
  - CHOLECYSTITIS ACUTE [None]
  - PAIN [None]
  - DYSPEPSIA [None]
  - CONSTIPATION [None]
  - ANXIETY [None]
  - GALLBLADDER DISORDER [None]
  - INJURY [None]
  - SCAR [None]
  - DEPRESSION [None]
